FAERS Safety Report 21690147 (Version 2)
Quarter: 2023Q1

REPORT INFORMATION
  Report Type: Spontaneous
  Country: US (occurrence: US)
  Receive Date: 20221206
  Receipt Date: 20230119
  Transmission Date: 20230418
  Serious: No
  Sender: FDA-Public Use
  Company Number: US-PFIZER INC-202201346132

PATIENT
  Age: 68 Year
  Sex: Female
  Weight: 71.67 kg

DRUGS (3)
  1. LEVOXYL [Suspect]
     Active Substance: LEVOTHYROXINE SODIUM
     Indication: Thyroidectomy
     Dosage: 112 UG, ALTERNATE DAY
  2. LEVOXYL [Suspect]
     Active Substance: LEVOTHYROXINE SODIUM
     Dosage: 125 UG, ALTERNATE DAY
  3. LEVOXYL [Suspect]
     Active Substance: LEVOTHYROXINE SODIUM
     Dosage: 125 UG, DAILY
     Dates: start: 2007

REACTIONS (1)
  - Intentional product misuse [Unknown]
